FAERS Safety Report 8326789-7 (Version None)
Quarter: 2012Q2

REPORT INFORMATION
  Report Type: 
  Country: None (occurrence: None)
  Receive Date: 20120501
  Receipt Date: 20120426
  Transmission Date: 20120825
  Serious: Yes (Disabling)
  Sender: FDA-Public Use
  Company Number: PHHY2012GB035642

PATIENT
  Sex: Male
  Weight: 75 kg

DRUGS (2)
  1. SIMVASTATIN [Suspect]
     Indication: HYPERLIPIDAEMIA
     Dosage: 40 MG, QD
     Route: 048
     Dates: start: 20100101, end: 20111019
  2. METFORMIN HCL [Concomitant]
     Indication: DIABETES MELLITUS
     Route: 048
     Dates: start: 20100101

REACTIONS (2)
  - LICHENOID KERATOSIS [None]
  - DRUG ERUPTION [None]
